FAERS Safety Report 6226718-6 (Version None)
Quarter: 2009Q2

REPORT INFORMATION
  Report Type: 
  Country: None (occurrence: None)
  Receive Date: 20090612
  Receipt Date: 20090603
  Transmission Date: 20091009
  Serious: Yes (Hospitalization)
  Sender: FDA-Public Use
  Company Number: BR-ROCHE-587278

PATIENT
  Sex: Male
  Weight: 68.1 kg

DRUGS (7)
  1. METHOXY POLYETHYLENE GLYCOL-EPOETIN BETA [Suspect]
     Dosage: FROM REPORTED AS PFS,LAST DOSE PRIOR TO SAE: 15 OCTOBER 2008
     Route: 058
     Dates: start: 20080430
  2. METHOXY POLYETHYLENE GLYCOL-EPOETIN BETA [Suspect]
     Route: 058
  3. METHOXY POLYETHYLENE GLYCOL-EPOETIN BETA [Suspect]
     Route: 058
  4. CAPTOPRIL [Concomitant]
     Dates: start: 20060101
  5. METHYLDOPA [Concomitant]
     Dates: start: 20060101
  6. MULTIVITAMIN WITH C [Concomitant]
     Dosage: DRUG NAME REPORTED AS POLIVITAMINIC.
     Dates: start: 20060101
  7. SEVELAMER [Concomitant]
     Dates: start: 20080402

REACTIONS (1)
  - HAEMOGLOBIN DECREASED [None]
